FAERS Safety Report 7327354-0 (Version None)
Quarter: 2011Q1

REPORT INFORMATION
  Report Type: 
  Country: None (occurrence: None)
  Receive Date: 20110302
  Receipt Date: 20110203
  Transmission Date: 20110831
  Serious: No
  Sender: FDA-Public Use
  Company Number: US-B.I. PHARMACEUTICALS,INC./RIDGEFIELD-2011-BP-03440BP

PATIENT
  Age: 65 Year
  Sex: Female

DRUGS (13)
  1. CYMBALTA [Concomitant]
     Indication: DEPRESSION
     Route: 048
  2. KEPPRA [Concomitant]
     Indication: HEADACHE
     Route: 048
  3. CRESTOR [Concomitant]
     Indication: BLOOD TRIGLYCERIDES INCREASED
  4. KEPPRA [Concomitant]
     Indication: CONVULSION
  5. AMIODARONE [Concomitant]
     Indication: ATRIAL FIBRILLATION
     Route: 048
  6. VALTURNA [Concomitant]
     Indication: HYPERTENSION
     Route: 048
  7. LOVAZA [Concomitant]
     Indication: BLOOD CHOLESTEROL INCREASED
     Route: 048
  8. PRADAXA [Suspect]
     Indication: ATRIAL FIBRILLATION
     Dosage: 300 MG
     Route: 048
     Dates: start: 20110127
  9. LOVAZA [Concomitant]
     Indication: BLOOD TRIGLYCERIDES INCREASED
  10. CRESTOR [Concomitant]
     Indication: BLOOD CHOLESTEROL INCREASED
     Route: 048
  11. SYNTHROID [Concomitant]
     Indication: THYROID DISORDER
     Route: 048
  12. KLONOPIN [Concomitant]
     Indication: CONVULSION
     Route: 048
  13. AMLODIPINE [Concomitant]
     Indication: HYPERTENSION
     Route: 048

REACTIONS (2)
  - PRURITUS [None]
  - HOT FLUSH [None]
